FAERS Safety Report 8155981-X (Version None)
Quarter: 2012Q1

REPORT INFORMATION
  Report Type: 
  Country: None (occurrence: None)
  Receive Date: 20120222
  Receipt Date: 20120207
  Transmission Date: 20120608
  Serious: Yes (Other)
  Sender: FDA-Public Use
  Company Number: US-ENDO PHARMACEUTICALS INC.-OPER20120068

PATIENT
  Sex: Male

DRUGS (3)
  1. KEFLEX [Concomitant]
     Indication: INFECTION
     Dosage: UNKNOWN
     Route: 065
  2. DILAUDID [Suspect]
     Indication: BREAKTHROUGH PAIN
     Dosage: UNKNOWN
     Route: 065
  3. OPANA ER [Suspect]
     Indication: PAIN
     Route: 048

REACTIONS (2)
  - INAPPROPRIATE SCHEDULE OF DRUG ADMINISTRATION [None]
  - INTENTIONAL DRUG MISUSE [None]
